FAERS Safety Report 9537209 (Version 1)
Quarter: 2013Q3

REPORT INFORMATION
  Report Type: Spontaneous
  Country: US (occurrence: US)
  Receive Date: 20130919
  Receipt Date: 20130919
  Transmission Date: 20140515
  Serious: No
  Sender: FDA-Public Use
  Company Number: US-PURDUE-USA-2013-0097457

PATIENT
  Age: 65 Year
  Sex: Male

DRUGS (1)
  1. INTERMEZZO [Suspect]
     Indication: MIDDLE INSOMNIA
     Dosage: 3.50 MG, PRN
     Route: 060
     Dates: end: 20130108

REACTIONS (1)
  - Drug ineffective [Unknown]
